FAERS Safety Report 14929827 (Version 3)
Quarter: 2018Q2

REPORT INFORMATION
  Report Type: Spontaneous
  Country: DE (occurrence: DE)
  Receive Date: 20180523
  Receipt Date: 20180523
  Transmission Date: 20180711
  Serious: Yes (Other)
  Sender: FDA-Public Use
  Company Number: PHHY2018DE006373

PATIENT
  Age: 25 Year
  Sex: Female
  Weight: 57 kg

DRUGS (6)
  1. PREDNISOLON [Suspect]
     Active Substance: PREDNISOLONE
     Indication: SCLERODERMA
     Dosage: 5 MG, QD
     Route: 048
     Dates: start: 20171216, end: 20180126
  2. OMEPRAZOL [Suspect]
     Active Substance: OMEPRAZOLE
     Indication: GASTRITIS PROPHYLAXIS
     Dosage: 20 MG, QD
     Route: 048
     Dates: start: 20171216, end: 20180126
  3. CICLOSPORIN [Suspect]
     Active Substance: CYCLOSPORINE
     Indication: SCLERODERMA
     Dosage: 100 MG, QD
     Route: 048
     Dates: start: 20171216, end: 20180126
  4. FOLSAN [Concomitant]
     Active Substance: FOLIC ACID
     Indication: DRUG TOXICITY PROPHYLAXIS
     Dosage: 5 MG, QW (5 [MG/D (1X/WK) ]/ ALWAYS 24 H AFTER WEEKLY MTX)
     Route: 048
     Dates: start: 20171216, end: 20180126
  5. QUENSYL [Concomitant]
     Active Substance: HYDROXYCHLOROQUINE
     Indication: SCLERODERMA
     Route: 048
  6. METHOTREXATE. [Suspect]
     Active Substance: METHOTREXATE
     Indication: SCLERODERMA
     Dosage: 15 MG, QW
     Route: 048
     Dates: start: 20171216, end: 20180124

REACTIONS (1)
  - Abortion spontaneous [Recovered/Resolved]
